FAERS Safety Report 15616250 (Version 2)
Quarter: 2018Q4

REPORT INFORMATION
  Report Type: Report from Study
  Country: US (occurrence: US)
  Receive Date: 20181114
  Receipt Date: 20181119
  Transmission Date: 20190205
  Serious: No
  Sender: FDA-Public Use
  Company Number: US-ROCHE-2142140

PATIENT
  Age: 51 Year
  Sex: Female

DRUGS (3)
  1. SOLU-MEDROL [Concomitant]
     Active Substance: METHYLPREDNISOLONE SODIUM SUCCINATE
  2. OCREVUS [Suspect]
     Active Substance: OCRELIZUMAB
     Indication: PRIMARY PROGRESSIVE MULTIPLE SCLEROSIS
     Route: 042
     Dates: start: 201711
  3. OCREVUS [Suspect]
     Active Substance: OCRELIZUMAB
     Dosage: ONGOING:NO
     Route: 042
     Dates: start: 20171215

REACTIONS (7)
  - Pyrexia [Recovered/Resolved]
  - Upper respiratory tract infection [Unknown]
  - Malaise [Unknown]
  - Immunodeficiency [Unknown]
  - Chills [Recovered/Resolved]
  - Musculoskeletal disorder [Unknown]
  - Drug ineffective [Unknown]

NARRATIVE: CASE EVENT DATE: 20171215
